FAERS Safety Report 10392466 (Version 1)
Quarter: 2014Q3

REPORT INFORMATION
  Report Type: Spontaneous
  Country: BR (occurrence: BR)
  Receive Date: 20140819
  Receipt Date: 20140819
  Transmission Date: 20150326
  Serious: Yes (Hospitalization)
  Sender: FDA-Public Use
  Company Number: BR-SA-2014SA107336

PATIENT
  Sex: Female
  Weight: 58 kg

DRUGS (2)
  1. APIDRA SOLOSTAR [Suspect]
     Active Substance: INSULIN GLULISINE
     Indication: TYPE 1 DIABETES MELLITUS
     Route: 058
     Dates: start: 2008
  2. SOLOSTAR [Concomitant]
     Active Substance: DEVICE
     Indication: TYPE 1 DIABETES MELLITUS
     Dates: start: 2008

REACTIONS (6)
  - Vulvovaginal mycotic infection [Unknown]
  - Urinary tract infection [Unknown]
  - Hyperglycaemia [Recovered/Resolved]
  - Hyperphagia [Unknown]
  - Candida infection [Unknown]
  - Headache [Unknown]
